FAERS Safety Report 25756315 (Version 2)
Quarter: 2025Q3

REPORT INFORMATION
  Report Type: Spontaneous
  Country: JP (occurrence: JP)
  Receive Date: 20250903
  Receipt Date: 20250912
  Transmission Date: 20251020
  Serious: Yes (Other)
  Sender: NOVARTIS
  Company Number: JP-002147023-NVSJ2025JP008688

PATIENT
  Age: 7 Decade
  Sex: Male

DRUGS (5)
  1. ZOLEDRONIC ACID [Suspect]
     Active Substance: ZOLEDRONIC ACID
     Indication: Metastases to bone
     Dosage: 4 MG, QMO
     Route: 065
     Dates: start: 201306, end: 201406
  2. DENOSUMAB [Suspect]
     Active Substance: DENOSUMAB
     Indication: Metastases to bone
     Dosage: 120 MG, QMO
     Route: 065
  3. DENOSUMAB [Suspect]
     Active Substance: DENOSUMAB
     Dosage: 120 MG, Q3MO
     Route: 065
     Dates: start: 201908
  4. FLUTAMIDE [Concomitant]
     Active Substance: FLUTAMIDE
     Indication: Prostate cancer
     Route: 065
  5. FLUTICASONE PROPIONATE [Concomitant]
     Active Substance: FLUTICASONE PROPIONATE
     Indication: Asthma
     Route: 055

REACTIONS (6)
  - Osteonecrosis of jaw [Recovering/Resolving]
  - Exposed bone in jaw [Unknown]
  - Purulent discharge [Unknown]
  - Pain [Unknown]
  - Oral dysaesthesia [Recovered/Resolved]
  - Fistula [Unknown]

NARRATIVE: CASE EVENT DATE: 20160101
